FAERS Safety Report 9346659 (Version 1)
Quarter: 2013Q2

REPORT INFORMATION
  Report Type: Spontaneous
  Country: GB (occurrence: GB)
  Receive Date: 20130613
  Receipt Date: 20130613
  Transmission Date: 20140414
  Serious: Yes (Other)
  Sender: FDA-Public Use
  Company Number: GB-PFIZER INC-2013173804

PATIENT
  Age: 77 Year
  Sex: Male
  Weight: 79 kg

DRUGS (11)
  1. ATORVASTATIN [Suspect]
     Dosage: UNK
     Dates: start: 20121207
  2. TRAMADOL [Concomitant]
     Dosage: UNK
     Dates: start: 20130128, end: 20130227
  3. INDERAL [Concomitant]
     Dosage: UNK
     Dates: start: 20130201
  4. MIGRALEVE [Concomitant]
     Dosage: UNK
     Dates: start: 20130225, end: 20130309
  5. TAMSULOSIN HYDROCHLORIDE [Concomitant]
     Dosage: UNK
     Dates: start: 20130225
  6. ASPIRIN [Concomitant]
     Dosage: UNK
     Dates: start: 20130225, end: 20130509
  7. TEMAZEPAM [Concomitant]
     Dosage: UNK
     Dates: start: 20130226
  8. ZOLADEX [Concomitant]
     Dosage: UNK
     Dates: start: 20130301
  9. SOLIFENACIN SUCCINATE [Concomitant]
     Dosage: UNK
     Dates: start: 20130405
  10. AMLODIPINE [Concomitant]
     Dosage: UNK
     Dates: start: 20130411, end: 20130509
  11. ALFUZOSIN [Concomitant]
     Dates: start: 20130510

REACTIONS (1)
  - Headache [Recovered/Resolved]
